FAERS Safety Report 8352962-8 (Version None)
Quarter: 2012Q2

REPORT INFORMATION
  Report Type: 
  Country: None (occurrence: None)
  Receive Date: 20120511
  Receipt Date: 20120509
  Transmission Date: 20120825
  Serious: Yes (Disabling)
  Sender: FDA-Public Use
  Company Number: FR-BAYER-2012-045729

PATIENT
  Age: 40 Year
  Sex: Male

DRUGS (4)
  1. MOXIFLOXACIN HCL [Suspect]
     Indication: ASPERGILLOSIS
     Dosage: 400 MG, QD
     Route: 048
     Dates: start: 20120125, end: 20120420
  2. VFEND [Concomitant]
     Indication: ASPERGILLOSIS
     Dosage: 200 MG, QD
     Route: 048
     Dates: start: 20120202, end: 20120420
  3. MYAMBUTOL [Concomitant]
     Indication: TUBERCULOSIS
     Dosage: 400 MG, BID
     Route: 048
     Dates: start: 20110907, end: 20120420
  4. ISONIAZID [Concomitant]
     Indication: TUBERCULOSIS
     Dosage: 200 MG, QD
     Route: 048
     Dates: start: 20110907, end: 20120420

REACTIONS (1)
  - HYPOACUSIS [None]
